FAERS Safety Report 4968016-4 (Version None)
Quarter: 2006Q2

REPORT INFORMATION
  Report Type: 
  Country: None (occurrence: None)
  Receive Date: 20060404
  Receipt Date: 20060324
  Transmission Date: 20061013
  Serious: Yes (Death)
  Sender: FDA-Public Use
  Company Number: 06H-163-0306916-00

PATIENT
  Age: 27 Year
  Sex: Female

DRUGS (3)
  1. PROPOFOL [Suspect]
     Indication: SEDATIVE THERAPY
  2. DOPAMINE HCL [Suspect]
     Indication: BLOOD PRESSURE MANAGEMENT
  3. EPINEPHRINE [Suspect]
     Indication: HYPOTENSION

REACTIONS (8)
  - BRADYCARDIA [None]
  - CARDIAC ARREST [None]
  - CARDIAC PACEMAKER MALFUNCTION [None]
  - DRUG INTERACTION [None]
  - HYPERKALAEMIA [None]
  - HYPOTENSION [None]
  - METABOLIC ACIDOSIS [None]
  - PROPOFOL INFUSION SYNDROME [None]
